FAERS Safety Report 10699869 (Version 1)
Quarter: 2015Q1

REPORT INFORMATION
  Report Type: Report from Study
  Country: US (occurrence: US)
  Receive Date: 20150109
  Receipt Date: 20150109
  Transmission Date: 20150721
  Serious: Yes (Other)
  Sender: FDA-Public Use
  Company Number: PHEH2014US026214

PATIENT
  Sex: Male

DRUGS (1)
  1. MYFORTIC [Suspect]
     Active Substance: MYCOPHENOLATE SODIUM
     Indication: PRODUCT USED FOR UNKNOWN INDICATION
     Dosage: 720 MG, BID
     Route: 048

REACTIONS (17)
  - Nasal turbinate hypertrophy [Unknown]
  - Paraesthesia [Unknown]
  - Large intestine benign neoplasm [Unknown]
  - Sarcoidosis [Unknown]
  - Urine flow decreased [Unknown]
  - Rhinitis [Unknown]
  - Diabetes mellitus [Unknown]
  - Erectile dysfunction [Unknown]
  - Nasal septum deviation [Unknown]
  - Renal mass [Unknown]
  - Nocturia [Unknown]
  - Micturition urgency [Unknown]
  - Dyspnoea [Unknown]
  - Cataract [Unknown]
  - Immunodeficiency common variable [Unknown]
  - Bronchitis [Unknown]
  - Somnolence [Unknown]
